FAERS Safety Report 23897940 (Version 3)
Quarter: 2024Q2

REPORT INFORMATION
  Report Type: Spontaneous
  Country: US (occurrence: US)
  Receive Date: 20240524
  Receipt Date: 20240604
  Transmission Date: 20240716
  Serious: Yes (Hospitalization, Other)
  Sender: FDA-Public Use
  Company Number: US-MLMSERVICE-20240513-PI058590-00145-1

PATIENT
  Age: 60 Year
  Sex: Female

DRUGS (2)
  1. FENTANYL CITRATE [Suspect]
     Active Substance: FENTANYL CITRATE
     Indication: Agitation
     Dosage: UNK, CONTINUOUS
  2. FENTANYL CITRATE [Suspect]
     Active Substance: FENTANYL CITRATE
     Indication: Analgesic therapy

REACTIONS (4)
  - Hypercapnia [Recovering/Resolving]
  - Condition aggravated [Recovering/Resolving]
  - Chest wall rigidity [Recovering/Resolving]
  - Agitation [Recovering/Resolving]
